FAERS Safety Report 5528509-8 (Version None)
Quarter: 2007Q4

REPORT INFORMATION
  Report Type: 
  Country: None (occurrence: None)
  Receive Date: 20071123
  Receipt Date: 20071113
  Transmission Date: 20080405
  Serious: No
  Sender: FDA-Public Use
  Company Number: CHNY2007AU03629

PATIENT
  Age: 64 Year
  Sex: Male

DRUGS (4)
  1. NICOTINE [Suspect]
     Indication: SMOKING CESSATION THERAPY
     Dosage: 14 MG, QD, TRANSDERMAL, 14 MG, QD, TRANSDERMAL
     Route: 062
     Dates: start: 20071024, end: 20071025
  2. NICOTINE [Suspect]
     Indication: SMOKING CESSATION THERAPY
     Dosage: 14 MG, QD, TRANSDERMAL, 14 MG, QD, TRANSDERMAL
     Route: 062
     Dates: start: 20071012
  3. FENAC (DICLOFENAC SODIUM) [Concomitant]
  4. ATENOLOL [Concomitant]

REACTIONS (21)
  - ABDOMINAL PAIN UPPER [None]
  - APPLICATION SITE ERYTHEMA [None]
  - APPLICATION SITE IRRITATION [None]
  - APPLICATION SITE PRURITUS [None]
  - APPLICATION SITE VESICLES [None]
  - BLISTER [None]
  - BURNING SENSATION [None]
  - DRY SKIN [None]
  - DYSPEPSIA [None]
  - ERYTHEMA [None]
  - FEAR [None]
  - HEADACHE [None]
  - IMPAIRED HEALING [None]
  - LYMPH NODE PAIN [None]
  - PAIN [None]
  - PALPITATIONS [None]
  - PHARMACEUTICAL PRODUCT COMPLAINT [None]
  - PRURITUS [None]
  - RETCHING [None]
  - SKIN DISORDER [None]
  - WOUND SECRETION [None]
